FAERS Safety Report 24755915 (Version 1)
Quarter: 2024Q4

REPORT INFORMATION
  Report Type: Spontaneous
  Country: HR (occurrence: HR)
  Receive Date: 20241219
  Receipt Date: 20241219
  Transmission Date: 20250114
  Serious: Yes (Hospitalization, Other)
  Sender: ELI LILLY AND COMPANY
  Company Number: HR-ELI_LILLY_AND_COMPANY-HR202412008997

PATIENT
  Sex: Female

DRUGS (3)
  1. PEMETREXED [Suspect]
     Active Substance: PEMETREXED
     Indication: Product used for unknown indication
     Dosage: UNK, UNKNOWN
     Route: 065
  2. KEYTRUDA [Suspect]
     Active Substance: PEMBROLIZUMAB
     Indication: Lung adenocarcinoma
     Dosage: 400 MG, UNKNOWN
     Route: 065
     Dates: start: 202003, end: 202304
  3. CARBOPLATIN [Suspect]
     Active Substance: CARBOPLATIN
     Indication: Product used for unknown indication
     Dosage: UNK, UNKNOWN
     Route: 065

REACTIONS (6)
  - Hypothyroidism [Unknown]
  - Febrile neutropenia [Recovered/Resolved]
  - Sepsis [Recovered/Resolved]
  - Thrombocytopenia [Unknown]
  - Malignant neoplasm progression [Unknown]
  - Viral infection [Unknown]

NARRATIVE: CASE EVENT DATE: 20201001
